FAERS Safety Report 18605858 (Version 1)
Quarter: 2020Q4

REPORT INFORMATION
  Report Type: Spontaneous
  Country: FR (occurrence: FR)
  Receive Date: 20201211
  Receipt Date: 20201211
  Transmission Date: 20210114
  Serious: Yes (Hospitalization)
  Sender: FDA-Public Use
  Company Number: FR-JNJFOC-20201217302

PATIENT
  Age: 67 Year
  Sex: Female

DRUGS (1)
  1. DARATUMUMAB [Suspect]
     Active Substance: DARATUMUMAB
     Indication: AMYLOIDOSIS
     Route: 042
     Dates: start: 2016

REACTIONS (3)
  - Off label use [Unknown]
  - Product use in unapproved indication [Unknown]
  - Pathological fracture [Not Recovered/Not Resolved]

NARRATIVE: CASE EVENT DATE: 2016
